FAERS Safety Report 4338833-2 (Version None)
Quarter: 2004Q1

REPORT INFORMATION
  Report Type: 
  Country: None (occurrence: None)
  Receive Date: 20040329
  Receipt Date: 20040206
  Transmission Date: 20041129
  Serious: No
  Sender: FDA-Public Use
  Company Number: 04P-163-0249603-00

PATIENT
  Age: 73 Year
  Sex: Female
  Weight: 81.6475 kg

DRUGS (7)
  1. HUMIRA [Suspect]
     Indication: RHEUMATOID ARTHRITIS
     Dosage: 40 MG, 1 IN 2 WK, SUBCUTANEOUS
     Route: 058
     Dates: start: 20031125
  2. WARFARIN SODIUM [Concomitant]
  3. FUROSEMIDE [Concomitant]
  4. VICODIN [Concomitant]
  5. PREDNISONE [Concomitant]
  6. EPOGEN [Concomitant]
  7. HYDROXYCHLOROQUINE PHOSPHATE [Concomitant]

REACTIONS (2)
  - PLATELET COUNT INCREASED [None]
  - URINARY TRACT INFECTION [None]
